FAERS Safety Report 8129351-4 (Version None)
Quarter: 2012Q1

REPORT INFORMATION
  Report Type: 
  Country: None (occurrence: None)
  Receive Date: 20120210
  Receipt Date: 20120207
  Transmission Date: 20120608
  Serious: Yes (Death, Hospitalization, Other)
  Sender: FDA-Public Use
  Company Number: US-BAYER-2011-006270

PATIENT
  Age: 43 Year
  Sex: Female

DRUGS (37)
  1. LASIX [Concomitant]
     Dosage: 80 MG, Q12HR
     Route: 042
     Dates: start: 20040129, end: 20040203
  2. FLUCONAZOLE [Concomitant]
     Dosage: 200 MG, QD
     Route: 042
     Dates: start: 20040129
  3. MORPHINE SULFATE [Concomitant]
     Dosage: 1-2 MG Q12HR
     Route: 042
     Dates: start: 20040129, end: 20040203
  4. CEFUROXIN [Concomitant]
     Dosage: 3 G, UNK
     Route: 042
     Dates: start: 20040203
  5. MILRINONE [Concomitant]
     Dosage: 0.5 MCG/KG/MIN
     Route: 042
     Dates: start: 20040203
  6. HYDRALAZINE HCL [Concomitant]
     Dosage: 25 MG, Q6HR
     Route: 042
     Dates: start: 20040129
  7. HEPARIN [Concomitant]
     Dosage: 5000 U, UNK
     Dates: start: 20040129, end: 20040203
  8. CEFAZOLIN [Concomitant]
     Dosage: 1.5 G, UNK
     Route: 042
     Dates: start: 20040203
  9. TOPROL-XL [Concomitant]
     Dosage: 50 MG, QD
  10. TRASYLOL [Suspect]
     Dosage: 50 ML/HR, UNK
     Dates: start: 20040203, end: 20040203
  11. LISINOPRIL [Concomitant]
  12. SEVELAMER [Concomitant]
     Dosage: 800 MG, TID
     Route: 048
     Dates: start: 20040202, end: 20040203
  13. HYDROCHLOROTHIAZIDE [Concomitant]
  14. BEXTRA [Concomitant]
  15. TRASYLOL [Suspect]
     Indication: TRICUSPID VALVE REPAIR
     Dosage: 1 ML, UNK
     Route: 042
     Dates: start: 20040203, end: 20040203
  16. RENAGEL [Concomitant]
     Dosage: UNK
     Dates: start: 20040202
  17. ZAROXOLYN [Concomitant]
     Dosage: 2.5 MG, QD
     Route: 048
     Dates: start: 20040129, end: 20040203
  18. HEPARIN [Concomitant]
     Dosage: 3500 U, UNK
     Route: 042
     Dates: start: 20040203, end: 20040203
  19. NOREPINEPHRINE BITARTRATE [Concomitant]
     Dosage: UNK
     Route: 042
     Dates: start: 20040203
  20. ACETYLSALICYLIC ACID SRT [Concomitant]
     Dosage: 325 MG, QD
  21. LIPITOR [Concomitant]
  22. ALTACE [Concomitant]
     Dosage: 2.5 MG, QD
     Route: 048
     Dates: start: 20040129, end: 20040203
  23. IMDUR [Concomitant]
     Dosage: 30 MG, QD
     Dates: start: 20040129, end: 20040203
  24. BACTROBAN [Concomitant]
     Dosage: UNK
     Route: 061
     Dates: start: 20040129, end: 20040203
  25. FENTANYL CITRATE [Concomitant]
     Dosage: 1000 MCG, UNK
     Route: 042
     Dates: start: 20040203, end: 20040203
  26. HUMAN RED BLOOD CELLS [Concomitant]
     Dosage: 2 U, UNK
     Dates: start: 20040203
  27. ISOFLURANE [Concomitant]
     Dosage: UNK
     Route: 042
     Dates: start: 20040203, end: 20040203
  28. TRASYLOL [Suspect]
     Indication: MITRAL VALVE REPLACEMENT
     Dosage: 200 ML, UNK
     Dates: start: 20040203, end: 20040203
  29. SPIRONOLACTONE [Concomitant]
     Dosage: 12.5 MG,Q8HR
     Route: 048
     Dates: start: 20040129
  30. MUCOMYST [Concomitant]
     Dosage: 600 MG, BID
     Route: 048
     Dates: start: 20040129, end: 20040203
  31. PROTAMINE SULFATE [Concomitant]
     Dosage: 300 MG, UNK
     Route: 042
     Dates: start: 20040203, end: 20040203
  32. DIOVAN [Concomitant]
     Dosage: 80 MG, QD
  33. ZYPREXA [Concomitant]
     Dosage: 2.5 MG, UNK
  34. BEXTRA [BUCINDOLOL HYDROCHLORIDE] [Concomitant]
  35. SODIUM BICARBONATE [Concomitant]
     Dosage: 650 MG, BID
     Route: 048
     Dates: start: 20040129
  36. INSULIN INJECTION [Concomitant]
     Dosage: 10 U, UNK
     Dates: start: 20040203, end: 20040203
  37. VASOPRESSIN INJECTION [Concomitant]
     Dosage: 2 MCG, UNK
     Route: 042
     Dates: start: 20040203

REACTIONS (13)
  - RENAL FAILURE [None]
  - FEAR [None]
  - ANHEDONIA [None]
  - ANXIETY [None]
  - INJURY [None]
  - UNEVALUABLE EVENT [None]
  - MULTI-ORGAN FAILURE [None]
  - STRESS [None]
  - RENAL IMPAIRMENT [None]
  - PAIN [None]
  - DEATH [None]
  - RENAL INJURY [None]
  - EMOTIONAL DISTRESS [None]
